FAERS Safety Report 24593207 (Version 1)
Quarter: 2024Q4

REPORT INFORMATION
  Report Type: Spontaneous
  Country: IT (occurrence: IT)
  Receive Date: 20241108
  Receipt Date: 20241108
  Transmission Date: 20250114
  Serious: Yes (Other)
  Sender: Teyro Labs
  Company Number: IT-TEYRO-2024-TY-000872

PATIENT

DRUGS (3)
  1. GEMCITABINE [Suspect]
     Active Substance: GEMCITABINE
     Indication: Non-small cell lung cancer metastatic
     Dosage: 1250 MG/M2
     Route: 065
  2. CISPLATIN [Suspect]
     Active Substance: CISPLATIN
     Indication: Non-small cell lung cancer
     Dosage: UNKNOWN
     Route: 065
  3. SPARTALIZUMAB [Suspect]
     Active Substance: SPARTALIZUMAB
     Indication: Non-small cell lung cancer
     Dosage: INITIAL DOSE LEVEL 300 MG INTRAVENOUS EVERY 3 WEEKS AND DOSE LEVEL-1 AT 300 MG I.V.  Q6W
     Route: 042

REACTIONS (1)
  - Abdominal pain [Unknown]
